FAERS Safety Report 9798770 (Version 2)
Quarter: 2014Q1

REPORT INFORMATION
  Report Type: Spontaneous
  Country: US (occurrence: US)
  Receive Date: 20140106
  Receipt Date: 20140106
  Transmission Date: 20141002
  Serious: Yes (Hospitalization)
  Sender: FDA-Public Use
  Company Number: US-GILEAD-2010-0030009

PATIENT
  Sex: Female

DRUGS (1)
  1. LETAIRIS [Suspect]

REACTIONS (1)
  - Dyspnoea [Unknown]
